FAERS Safety Report 5422708-1 (Version None)
Quarter: 2007Q3

REPORT INFORMATION
  Report Type: 
  Country: None (occurrence: None)
  Receive Date: 20070822
  Receipt Date: 20070817
  Transmission Date: 20080115
  Serious: Yes (Hospitalization)
  Sender: FDA-Public Use
  Company Number: ES-ROXANE LABORATORIES, INC-2007-DE-04527GD

PATIENT
  Age: 75 Year
  Sex: Female

DRUGS (9)
  1. HYDROCHLOROTHIAZIDE [Suspect]
     Indication: HYPERTENSION
     Route: 048
  2. METAMIZOLE [Suspect]
     Indication: TRIGEMINAL NEURALGIA
     Route: 042
  3. OXCARBAZEPINE [Suspect]
     Indication: TRIGEMINAL NEURALGIA
     Route: 048
  4. TRAMADOL HCL [Suspect]
     Indication: TRIGEMINAL NEURALGIA
     Route: 042
  5. GABAPENTIN [Suspect]
     Indication: TRIGEMINAL NEURALGIA
  6. TOPIRAMATE [Suspect]
     Indication: TRIGEMINAL NEURALGIA
     Route: 048
  7. BUPRENORPHINE HCL [Suspect]
     Indication: TRIGEMINAL NEURALGIA
     Route: 062
  8. PETHIDINE [Suspect]
     Indication: TRIGEMINAL NEURALGIA
     Route: 042
  9. ANGIOTENSIN II RECEPTOR INHIBITOR [Concomitant]
     Indication: HYPERTENSION

REACTIONS (4)
  - ASTHENIA [None]
  - DRUG INEFFECTIVE [None]
  - HYPONATRAEMIA [None]
  - MUSCULAR WEAKNESS [None]
